FAERS Safety Report 5214091-1 (Version None)
Quarter: 2007Q1

REPORT INFORMATION
  Report Type: 
  Country: None (occurrence: None)
  Receive Date: 20070122
  Receipt Date: 20070111
  Transmission Date: 20070707
  Serious: Yes (Hospitalization, Disabling, Other)
  Sender: FDA-Public Use
  Company Number: PHEH2006US12172

PATIENT
  Age: 67 Year
  Sex: Male
  Weight: 96.009 kg

DRUGS (8)
  1. LOPRESSOR [Suspect]
     Dosage: 50 MG, BID
     Route: 048
     Dates: start: 20060724
  2. CLOPIDOGREL [Concomitant]
     Dosage: 4 CAPSULES
     Dates: start: 20060724, end: 20060724
  3. SYNTHROID [Concomitant]
     Dosage: 0.2 MG, QD
  4. ALTACE [Concomitant]
     Dosage: 10 MG, QD
  5. ALTACE [Concomitant]
     Dosage: 20 MG, QD
     Dates: start: 20060928
  6. ASPIRIN [Concomitant]
  7. PLAVIX [Concomitant]
     Dosage: 75 MG, QD
  8. LIPITOR [Concomitant]
     Dosage: 80 MG, QD

REACTIONS (5)
  - BLOOD PRESSURE INCREASED [None]
  - CARDIAC PACEMAKER INSERTION [None]
  - ELECTROCARDIOGRAM QT PROLONGED [None]
  - FLUSHING [None]
  - SINUS ARREST [None]
